FAERS Safety Report 6554086-9 (Version None)
Quarter: 2010Q1

REPORT INFORMATION
  Report Type: 
  Country: None (occurrence: None)
  Receive Date: 20100127
  Receipt Date: 20100115
  Transmission Date: 20100710
  Serious: No
  Sender: FDA-Public Use
  Company Number: US-ELI_LILLY_AND_COMPANY-US200910001746

PATIENT
  Age: 30 Year
  Sex: Female

DRUGS (8)
  1. CYMBALTA [Suspect]
     Indication: PAIN
     Dosage: 30 MG, UNK
     Dates: end: 20060101
  2. CYMBALTA [Suspect]
     Dosage: 60 MG, UNK
     Dates: start: 20060101, end: 20090701
  3. NORCO [Concomitant]
     Indication: PAIN
  4. METFORMIN [Concomitant]
  5. ALLEGRA [Concomitant]
  6. ZANTAC [Concomitant]
  7. ZANAFLEX [Concomitant]
  8. ACIPHEX [Concomitant]

REACTIONS (3)
  - BLOOD ALKALINE PHOSPHATASE INCREASED [None]
  - HEPATIC CYST [None]
  - OFF LABEL USE [None]
